FAERS Safety Report 10019880 (Version 1)
Quarter: 2014Q1

REPORT INFORMATION
  Report Type: Spontaneous
  Country: US (occurrence: US)
  Receive Date: 20140318
  Receipt Date: 20140318
  Transmission Date: 20141002
  Serious: No
  Sender: FDA-Public Use
  Company Number: US-GALDERMA-US14000041

PATIENT
  Age: 71 Year
  Sex: Female

DRUGS (6)
  1. MIRVASO (BRIMONIDINE) TOPICAL GEL, 0.33% [Suspect]
     Indication: ROSACEA
     Dosage: 0.33%
     Route: 061
     Dates: start: 20131218
  2. METROGEL (METRONIDAZOLE) GEL, 1% [Suspect]
     Indication: ROSACEA
     Dosage: 1%
     Route: 061
     Dates: start: 20131218
  3. DOVE SOAP [Concomitant]
     Indication: THERAPEUTIC SKIN CARE TOPICAL
     Route: 061
  4. TRILANE MOISTURIZER [Concomitant]
     Indication: DRY SKIN PROPHYLAXIS
     Route: 061
  5. REVLON OIL FREE FOUNDATION [Concomitant]
     Indication: THERAPEUTIC SKIN CARE TOPICAL
     Route: 061
  6. SYNTHROID (LEVOTHYROXINE) [Concomitant]
     Indication: THYROID DISORDER
     Route: 048

REACTIONS (1)
  - Drug ineffective [Not Recovered/Not Resolved]
